FAERS Safety Report 13615355 (Version 1)
Quarter: 2017Q2

REPORT INFORMATION
  Report Type: Spontaneous
  Country: US (occurrence: US)
  Receive Date: 20170606
  Receipt Date: 20170606
  Transmission Date: 20170830
  Serious: No
  Sender: FDA-Public Use
  Company Number: US-PFIZER INC-2017244083

PATIENT
  Age: 15 Year
  Sex: Male

DRUGS (1)
  1. TESTOSTERONE CIPIONATE [Suspect]
     Active Substance: TESTOSTERONE
     Indication: DELAYED PUBERTY
     Dosage: 100 MG, UNK (0.5 ML (100MG, ONCE EVERY THIRTY DAYS FOR FOUR DOSES)
     Route: 030

REACTIONS (1)
  - Drug ineffective for unapproved indication [Unknown]
